FAERS Safety Report 17742698 (Version 11)
Quarter: 2020Q4

REPORT INFORMATION
  Report Type: Spontaneous
  Country: CA (occurrence: CA)
  Receive Date: 20200505
  Receipt Date: 20201204
  Transmission Date: 20210113
  Serious: Yes (Other)
  Sender: FDA-Public Use
  Company Number: CA-CELLTRION INC.-2019CA027883

PATIENT

DRUGS (8)
  1. INFLECTRA [Suspect]
     Active Substance: INFLIXIMAB-DYYB
     Indication: CROHN^S DISEASE
     Dosage: 400 MG,  (EVERY 6 WEEKS)
     Route: 042
     Dates: start: 20200203, end: 20200203
  2. INFLECTRA [Suspect]
     Active Substance: INFLIXIMAB-DYYB
     Dosage: 400 MG,  (EVERY 8 WEEKS)
     Route: 042
     Dates: start: 20201126
  3. INFLECTRA [Suspect]
     Active Substance: INFLIXIMAB-DYYB
     Dosage: 400 MG,  (EVERY 6 WEEKS)
     Route: 042
     Dates: start: 20201001
  4. INFLECTRA [Suspect]
     Active Substance: INFLIXIMAB-DYYB
     Dosage: 400 MG,  (EVERY 6 WEEKS)
     Route: 042
     Dates: start: 20200709, end: 20200709
  5. INFLECTRA [Suspect]
     Active Substance: INFLIXIMAB-DYYB
     Dosage: 400 MG,  (EVERY 6 WEEKS)
     Route: 042
     Dates: start: 20200316
  6. INFLECTRA [Suspect]
     Active Substance: INFLIXIMAB-DYYB
     Dosage: 400 MG,  (EVERY 6 WEEKS)
     Route: 042
     Dates: start: 20200821
  7. INFLECTRA [Suspect]
     Active Substance: INFLIXIMAB-DYYB
     Dosage: 400 MG, (EVERY 6 WEEKS)
     Route: 042
     Dates: start: 20200427
  8. INFLECTRA [Suspect]
     Active Substance: INFLIXIMAB-DYYB
     Dosage: 400 MG,  (EVERY 6 WEEKS)
     Route: 042
     Dates: start: 20200605

REACTIONS (11)
  - Drug level above therapeutic [Not Recovered/Not Resolved]
  - Product use issue [Unknown]
  - Vertigo [Unknown]
  - Head discomfort [Recovered/Resolved]
  - Fatigue [Unknown]
  - Alopecia [Unknown]
  - Renal failure [Unknown]
  - Condition aggravated [Unknown]
  - Intentional product use issue [Unknown]
  - Off label use [Unknown]
  - Off label use [Unknown]

NARRATIVE: CASE EVENT DATE: 202002
